FAERS Safety Report 7599815-0 (Version None)
Quarter: 2011Q3

REPORT INFORMATION
  Report Type: 
  Country: None (occurrence: None)
  Receive Date: 20110711
  Receipt Date: 20110517
  Transmission Date: 20111222
  Serious: Yes (Other)
  Sender: FDA-Public Use
  Company Number: A0927599A

PATIENT
  Age: 77 Year
  Sex: Male

DRUGS (6)
  1. STALEVO 100 [Concomitant]
     Route: 065
  2. REQUIP XL [Suspect]
     Indication: PARKINSON'S DISEASE
     Dosage: 4MG TWICE PER DAY
     Route: 048
  3. UROXATRAL [Concomitant]
     Route: 065
  4. VESICARE [Concomitant]
     Route: 065
  5. AZILECT [Concomitant]
     Route: 065
  6. ALPRAZOLAM [Concomitant]
     Route: 065

REACTIONS (1)
  - HALLUCINATION [None]
